FAERS Safety Report 10236422 (Version 1)
Quarter: 2014Q2

REPORT INFORMATION
  Report Type: Spontaneous
  Country: US (occurrence: None)
  Receive Date: 20140612
  Receipt Date: 20140612
  Transmission Date: 20141212
  Serious: Yes (Hospitalization)
  Sender: FDA-Public Use
  Company Number: None

PATIENT
  Age: 67 Year
  Sex: Male
  Weight: 85 kg

DRUGS (1)
  1. SOLVALDI [Suspect]
     Dosage: LATE DEC13 OR EARLY JAN14
     Route: 048
     Dates: start: 201312

REACTIONS (4)
  - Confusional state [None]
  - Asterixis [None]
  - Ammonia increased [None]
  - Type 2 diabetes mellitus [None]
